FAERS Safety Report 17850672 (Version 1)
Quarter: 2020Q2

REPORT INFORMATION
  Report Type: Spontaneous
  Country: US (occurrence: US)
  Receive Date: 20200602
  Receipt Date: 20200602
  Transmission Date: 20200714
  Serious: No
  Sender: FDA-Public Use
  Company Number: None

PATIENT
  Age: 40 Year
  Sex: Female
  Weight: 65.25 kg

DRUGS (2)
  1. AIMOVIG [Suspect]
     Active Substance: ERENUMAB-AOOE
     Indication: MIGRAINE
     Dosage: ?          QUANTITY:1 INJECTION(S);OTHER FREQUENCY:MONTHLY;OTHER ROUTE:INJECTED INTO ABDOMEN?
  2. PASSIONFLOWER EXTRACT 1X/DAY FOR SLEEP [Concomitant]

REACTIONS (12)
  - Judgement impaired [None]
  - Bradyphrenia [None]
  - Gait inability [None]
  - Impaired work ability [None]
  - Dysarthria [None]
  - Muscle spasms [None]
  - Aphasia [None]
  - Muscle twitching [None]
  - Restlessness [None]
  - Vertigo [None]
  - Toxicity to various agents [None]
  - Hyperaesthesia [None]

NARRATIVE: CASE EVENT DATE: 20200602
